FAERS Safety Report 18691729 (Version 1)
Quarter: 2021Q1

REPORT INFORMATION
  Report Type: Spontaneous
  Country: FR (occurrence: FR)
  Receive Date: 20210102
  Receipt Date: 20210102
  Transmission Date: 20210419
  Serious: Yes (Life-Threatening)
  Sender: FDA-Public Use
  Company Number: FR-SUN PHARMACEUTICAL INDUSTRIES LTD-2020RR-273427

PATIENT
  Age: 62 Year
  Sex: Female

DRUGS (2)
  1. GABAPENTINE [Suspect]
     Active Substance: GABAPENTIN
     Indication: PRODUCT USED FOR UNKNOWN INDICATION
     Dosage: 2400 MILLIGRAM, DAILY
     Route: 048
     Dates: start: 20200705
  2. QIZENDAY (ATU DE COHORTE) [Suspect]
     Active Substance: BIOTIN
     Indication: MULTIPLE SCLEROSIS
     Dosage: 300 MILLIGRAM, DAILY
     Route: 048
     Dates: start: 20161102, end: 20200605

REACTIONS (1)
  - Breast cancer [Not Recovered/Not Resolved]

NARRATIVE: CASE EVENT DATE: 20200702
